FAERS Safety Report 5506343-2 (Version None)
Quarter: 2007Q4

REPORT INFORMATION
  Report Type: 
  Country: None (occurrence: None)
  Receive Date: 20071105
  Receipt Date: 20071029
  Transmission Date: 20080405
  Serious: Yes (Death, Life-Threatening)
  Sender: FDA-Public Use
  Company Number: IT-AVENTIS-200719216GDDC

PATIENT
  Age: 70 Year
  Sex: Male

DRUGS (5)
  1. ARAVA [Suspect]
     Indication: RHEUMATOID ARTHRITIS
     Route: 048
     Dates: start: 20040101, end: 20071002
  2. ARAVA [Suspect]
     Route: 048
  3. ENALAPRIL MALEATE [Suspect]
     Indication: HYPERTENSION
     Route: 048
  4. METHYLPREDNISOLONE [Concomitant]
  5. LANSOPRAZOLE [Concomitant]

REACTIONS (7)
  - BLOOD CREATININE INCREASED [None]
  - HYPERURICAEMIA [None]
  - HYPOCALCAEMIA [None]
  - LIVER FUNCTION TEST ABNORMAL [None]
  - METABOLIC ACIDOSIS [None]
  - RENAL FAILURE [None]
  - RHABDOMYOLYSIS [None]
